FAERS Safety Report 9997922 (Version 1)
Quarter: 2014Q1

REPORT INFORMATION
  Report Type: Spontaneous
  Country: US (occurrence: US)
  Receive Date: 20140311
  Receipt Date: 20140311
  Transmission Date: 20141002
  Serious: Yes (Other)
  Sender: FDA-Public Use
  Company Number: US-FRI-1000060247

PATIENT
  Sex: Female

DRUGS (1)
  1. FETZIMA [Suspect]
     Dosage: 40 MG

REACTIONS (1)
  - Angioedema [Unknown]
